FAERS Safety Report 7433606-6 (Version None)
Quarter: 2011Q2

REPORT INFORMATION
  Report Type: 
  Country: None (occurrence: None)
  Receive Date: 20110422
  Receipt Date: 20110410
  Transmission Date: 20111010
  Serious: Yes (Other)
  Sender: FDA-Public Use
  Company Number: US-WATSON-2011-05409

PATIENT
  Age: 19 Year
  Sex: Female
  Weight: 56.7 kg

DRUGS (1)
  1. LEVONORGESTREL [Suspect]
     Indication: POST COITAL CONTRACEPTION
     Dosage: 1ST TAB TAKEN WITHIN 72 HRS. OF INTERCOURSE, 2ND TAB TAKEN A LITTLE OVER 12 HRS.
     Route: 048
     Dates: start: 20110409, end: 20110410

REACTIONS (4)
  - INAPPROPRIATE SCHEDULE OF DRUG ADMINISTRATION [None]
  - PHARYNGEAL OEDEMA [None]
  - EYE SWELLING [None]
  - DRUG HYPERSENSITIVITY [None]
